FAERS Safety Report 5723020-3 (Version None)
Quarter: 2008Q2

REPORT INFORMATION
  Report Type: 
  Country: None (occurrence: None)
  Receive Date: 20080428
  Receipt Date: 20080428
  Transmission Date: 20081010
  Serious: Yes (Other)
  Sender: FDA-Public Use
  Company Number: None

PATIENT
  Age: 71 Year
  Sex: Female

DRUGS (2)
  1. IBUPROFEN TABLETS [Suspect]
     Indication: BACK PAIN
     Dosage: TAKE 1 TABLET EVERY 6  TO 8 HOURS AS NEEDED
  2. IBUPROFEN TABLETS [Suspect]
     Indication: RHEUMATOID ARTHRITIS
     Dosage: TAKE 1 TABLET EVERY 6  TO 8 HOURS AS NEEDED

REACTIONS (2)
  - DRUG INEFFECTIVE [None]
  - PHARMACEUTICAL PRODUCT COMPLAINT [None]
